FAERS Safety Report 7543270-3 (Version None)
Quarter: 2011Q2

REPORT INFORMATION
  Report Type: 
  Country: None (occurrence: None)
  Receive Date: 20110524
  Receipt Date: 20110121
  Transmission Date: 20111010
  Serious: No
  Sender: FDA-Public Use
  Company Number: 021075

PATIENT
  Sex: Male
  Weight: 83.9 kg

DRUGS (7)
  1. OMEPRAZOLE [Concomitant]
  2. CIMZIA [Suspect]
     Indication: CROHN'S DISEASE
     Dosage: 400 MG 1X/2 WEEKS SUBCUTANEOUS
     Route: 058
     Dates: start: 20101011
  3. PENTASA [Concomitant]
  4. NORVASC [Concomitant]
  5. AMBIEN [Concomitant]
  6. AMLODIPINE [Concomitant]
  7. MAGNESIUM OXIDE [Concomitant]

REACTIONS (4)
  - INSOMNIA [None]
  - SINUSITIS [None]
  - ASTHENIA [None]
  - FATIGUE [None]
